FAERS Safety Report 6179063-1 (Version None)
Quarter: 2009Q2

REPORT INFORMATION
  Report Type: 
  Country: None (occurrence: None)
  Receive Date: 20090505
  Receipt Date: 20090501
  Transmission Date: 20091009
  Serious: Yes (Hospitalization)
  Sender: FDA-Public Use
  Company Number: PHHY2009TW16614

PATIENT
  Sex: Female
  Weight: 66 kg

DRUGS (1)
  1. ZOLEDRONATE T29581++BM [Suspect]

REACTIONS (2)
  - DYSPNOEA [None]
  - PLEURAL EFFUSION [None]
